FAERS Safety Report 18439740 (Version 2)
Quarter: 2020Q4

REPORT INFORMATION
  Report Type: Spontaneous
  Country: GB (occurrence: GB)
  Receive Date: 20201029
  Receipt Date: 20201203
  Transmission Date: 20210114
  Serious: Yes (Life-Threatening, Hospitalization, Other)
  Sender: FDA-Public Use
  Company Number: GB-VISTAPHARM, INC.-VER202010-001859

PATIENT
  Age: 17 Year
  Sex: Male

DRUGS (1)
  1. PHENYTOIN. [Suspect]
     Active Substance: PHENYTOIN
     Indication: GENERALISED TONIC-CLONIC SEIZURE
     Dosage: 200 MG
     Route: 065

REACTIONS (4)
  - Stevens-Johnson syndrome [Unknown]
  - Diarrhoea haemorrhagic [Recovered/Resolved]
  - Malnutrition [Recovered/Resolved]
  - Colitis [Unknown]
